FAERS Safety Report 4323330-0 (Version None)
Quarter: 2004Q1

REPORT INFORMATION
  Report Type: 
  Country: None (occurrence: None)
  Receive Date: 20040322
  Receipt Date: 20040305
  Transmission Date: 20041129
  Serious: Yes (Hospitalization)
  Sender: FDA-Public Use
  Company Number: RS004307-GB

PATIENT
  Age: 29 Year
  Sex: Male

DRUGS (4)
  1. RABEPRAZOLE (RABEPRAZOLE SODIUM) [Suspect]
     Dosage: ORAL
     Route: 048
  2. CLOZARIL [Suspect]
     Indication: SCHIZOPHRENIA
     Dosage: 450 MG, ORAL
     Route: 048
     Dates: start: 20020327
  3. ZOPICLONE (ZOPICLONE) [Suspect]
  4. PAROXETINE HCL [Suspect]

REACTIONS (4)
  - ASPIRATION [None]
  - OVERDOSE [None]
  - RESPIRATORY DISORDER [None]
  - SOMNOLENCE [None]
